FAERS Safety Report 5451286-6 (Version None)
Quarter: 2007Q3

REPORT INFORMATION
  Report Type: 
  Country: None (occurrence: None)
  Receive Date: 20070911
  Receipt Date: 20070911
  Transmission Date: 20080115
  Serious: Yes (Life-Threatening, Hospitalization)
  Sender: FDA-Public Use
  Company Number: None

PATIENT
  Age: 33 Year
  Sex: Female
  Weight: 54.4316 kg

DRUGS (1)
  1. DIPRIVAN [Suspect]
     Indication: COLONOSCOPY
     Dosage: UNSURE IV BOLUS
     Route: 040
     Dates: start: 20070904, end: 20070904

REACTIONS (6)
  - ASPIRATION [None]
  - INJECTION SITE PAIN [None]
  - OXYGEN SATURATION DECREASED [None]
  - PNEUMONIA [None]
  - PROCEDURAL COMPLICATION [None]
  - SEPSIS [None]
